FAERS Safety Report 18199665 (Version 1)
Quarter: 2020Q3

REPORT INFORMATION
  Report Type: Spontaneous
  Country: US (occurrence: PH)
  Receive Date: 20200826
  Receipt Date: 20200826
  Transmission Date: 20201103
  Serious: Yes (Other)
  Sender: FDA-Public Use
  Company Number: US-PFIZER INC-2018125707

PATIENT
  Age: 11 Year
  Sex: Male
  Weight: 86.18 kg

DRUGS (3)
  1. DILANTIN [Suspect]
     Active Substance: PHENYTOIN
     Dosage: 1 DF, 2X/DAY (1 CAPSULE BY MOUTH TWICE A DAY (MORNING AND AFTERNOON))
     Route: 048
     Dates: start: 19700418, end: 197005
  2. LISINOPRIL. [Concomitant]
     Active Substance: LISINOPRIL
     Dosage: UNK
  3. DILANTIN [Suspect]
     Active Substance: PHENYTOIN
     Indication: SEIZURE PROPHYLAXIS
     Dosage: 500 MG, (ONCE A DAY OR TWICE A DAY)
     Route: 048
     Dates: start: 19780417, end: 197805

REACTIONS (41)
  - Piloerection [Unknown]
  - Asthenia [Unknown]
  - Headache [Unknown]
  - Confusional state [Unknown]
  - Gingival hypertrophy [Unknown]
  - Skin lesion [Not Recovered/Not Resolved]
  - Muscle spasms [Unknown]
  - Tremor [Unknown]
  - Vomiting [Unknown]
  - Irritability [Unknown]
  - Renal disorder [Unknown]
  - Angina pectoris [Unknown]
  - Tooth disorder [Unknown]
  - Skin disorder [Unknown]
  - Blood disorder [Unknown]
  - Drug ineffective [Unknown]
  - Thermal burn [Not Recovered/Not Resolved]
  - Balance disorder [Unknown]
  - Coordination abnormal [Unknown]
  - Mood altered [Unknown]
  - Cardiac disorder [Unknown]
  - Feeling abnormal [Not Recovered/Not Resolved]
  - Fatigue [Unknown]
  - Hypersensitivity [Not Recovered/Not Resolved]
  - Nausea [Unknown]
  - Dizziness [Unknown]
  - Somnolence [Unknown]
  - Insomnia [Unknown]
  - Bradyphrenia [Unknown]
  - Acne [Unknown]
  - Near death experience [Unknown]
  - Neurodegenerative disorder [Unknown]
  - Constipation [Unknown]
  - Eye movement disorder [Unknown]
  - Depression [Unknown]
  - Product quality issue [Unknown]
  - Dysarthria [Unknown]
  - Dyskinesia [Unknown]
  - Restlessness [Unknown]
  - Gingival bleeding [Unknown]
  - Pain [Unknown]

NARRATIVE: CASE EVENT DATE: 19700418
